FAERS Safety Report 12789733 (Version 6)
Quarter: 2016Q4

REPORT INFORMATION
  Report Type: Report from Study
  Country: US (occurrence: US)
  Receive Date: 20160928
  Receipt Date: 20161116
  Transmission Date: 20170207
  Serious: Yes (Hospitalization)
  Sender: FDA-Public Use
  Company Number: US-JNJFOC-20160926308

PATIENT
  Age: 10 Year
  Sex: Male
  Weight: 20.7 kg

DRUGS (5)
  1. 5-ASA [Concomitant]
     Active Substance: MESALAMINE
     Route: 048
  2. REMICADE [Suspect]
     Active Substance: INFLIXIMAB
     Indication: INFLAMMATORY BOWEL DISEASE
     Route: 042
     Dates: start: 20150501, end: 20150805
  3. AZATHIOPRINE. [Concomitant]
     Active Substance: AZATHIOPRINE
     Route: 065
     Dates: start: 20161103
  4. AZATHIOPRINE. [Concomitant]
     Active Substance: AZATHIOPRINE
     Route: 065
  5. CIMZIA [Concomitant]
     Active Substance: CERTOLIZUMAB PEGOL
     Route: 065
     Dates: start: 20151124

REACTIONS (1)
  - Large intestinal stenosis [Recovered/Resolved with Sequelae]

NARRATIVE: CASE EVENT DATE: 20160921
